FAERS Safety Report 8904746 (Version 6)
Quarter: 2019Q3

REPORT INFORMATION
  Report Type: Report from Study
  Country: IT (occurrence: IT)
  Receive Date: 20121113
  Receipt Date: 20190920
  Transmission Date: 20191005
  Serious: Yes (Life-Threatening, Hospitalization, Other)
  Sender: FDA-Public Use
  Company Number: IT-JNJFOC-20121104620

PATIENT
  Age: 79 Year
  Sex: Male
  Weight: 53 kg

DRUGS (14)
  1. ABIRATERONE ACETATE. [Suspect]
     Active Substance: ABIRATERONE ACETATE
     Indication: HORMONE-REFRACTORY PROSTATE CANCER
     Route: 048
     Dates: start: 20121019, end: 20121021
  2. REPAGLINIDE. [Interacting]
     Active Substance: REPAGLINIDE
     Route: 065
  3. ALLOPURINOL. [Concomitant]
     Active Substance: ALLOPURINOL
     Route: 065
  4. REPAGLINIDE. [Interacting]
     Active Substance: REPAGLINIDE
     Indication: TYPE 2 DIABETES MELLITUS
     Route: 065
     Dates: start: 20120609, end: 20121025
  5. REPAGLINIDE. [Interacting]
     Active Substance: REPAGLINIDE
     Dosage: 0.5 MG, 1 MG AND 0.5 MG THREE TIMES DAILY
     Route: 065
     Dates: start: 20121026
  6. ELIGARD [Concomitant]
     Active Substance: LEUPROLIDE ACETATE
     Indication: HORMONE THERAPY
     Route: 065
     Dates: start: 200603
  7. REPAGLINIDE. [Interacting]
     Active Substance: REPAGLINIDE
     Dosage: 0.5 MG, 1 MG AND 0.5 MG THREE TIMES DAILY
     Route: 065
     Dates: start: 20121026
  8. FUROSEMIDE. [Concomitant]
     Active Substance: FUROSEMIDE
     Route: 065
  9. LANSOPRAZOLE. [Concomitant]
     Active Substance: LANSOPRAZOLE
     Route: 065
  10. PREDNISONE. [Suspect]
     Active Substance: PREDNISONE
     Indication: HORMONE-REFRACTORY PROSTATE CANCER
     Route: 048
     Dates: start: 20121017
  11. SIMVASTATIN. [Concomitant]
     Active Substance: SIMVASTATIN
     Route: 065
  12. NITROGLYCERIN. [Concomitant]
     Active Substance: NITROGLYCERIN
     Route: 065
  13. ATENOLOL. [Concomitant]
     Active Substance: ATENOLOL
     Route: 065
  14. REPAGLINIDE. [Interacting]
     Active Substance: REPAGLINIDE
     Dosage: 1 MG, 2 MG AND 1 MG THREE TIMES DAILY
     Route: 065
     Dates: start: 20120609, end: 20121025

REACTIONS (2)
  - Hypoglycaemia [Recovered/Resolved]
  - Drug interaction [Recovered/Resolved]

NARRATIVE: CASE EVENT DATE: 20121021
